FAERS Safety Report 7755755-5 (Version None)
Quarter: 2011Q3

REPORT INFORMATION
  Report Type: 
  Country: None (occurrence: None)
  Receive Date: 20110916
  Receipt Date: 20110914
  Transmission Date: 20111222
  Serious: Yes (Other)
  Sender: FDA-Public Use
  Company Number: PHHY2011NL81997

PATIENT
  Sex: Male

DRUGS (2)
  1. ZOMETA [Suspect]
     Indication: PROSTATE CANCER METASTATIC
     Dosage: 4 MG,/5ML , 1X PER 28 DAYS, 4 MG IV IN 20 MINUTES
     Dates: start: 20080222
  2. ZOMETA [Suspect]
     Dosage: 4 MG,/5ML , 1X PER 28 DAYS
     Dates: start: 20110812, end: 20110812

REACTIONS (3)
  - PAIN IN JAW [None]
  - BONE DISORDER [None]
  - ABSCESS JAW [None]
